FAERS Safety Report 7425851-0 (Version None)
Quarter: 2011Q2

REPORT INFORMATION
  Report Type: 
  Country: None (occurrence: None)
  Receive Date: 20110420
  Receipt Date: 20110411
  Transmission Date: 20111010
  Serious: Yes (Other)
  Sender: FDA-Public Use
  Company Number: CA-ROCHE-674645

PATIENT
  Age: 64 Year
  Sex: Male

DRUGS (4)
  1. CANDESARTAN [Concomitant]
     Indication: HYPERTENSION
  2. BEVACIZUMAB [Suspect]
     Dosage: 13 INJECTIONS IN RIGHT EYE AND 7 INJECTIONS IN LEFT EYE.
     Route: 031
  3. RANIBIZUMAB [Suspect]
     Dosage: 6 INJECTIONS IN LEFT EYE.
     Route: 031
  4. RABEPRAZOLE SODIUM [Concomitant]

REACTIONS (3)
  - DIZZINESS [None]
  - CONFUSIONAL STATE [None]
  - IIIRD NERVE PARALYSIS [None]
